FAERS Safety Report 8653132 (Version 7)
Quarter: 2019Q4

REPORT INFORMATION
  Report Type: Spontaneous
  Country: DK (occurrence: DK)
  Receive Date: 20120706
  Receipt Date: 20191022
  Transmission Date: 20200122
  Serious: Yes (Death, Hospitalization, Other)
  Sender: FDA-Public Use
  Company Number: DK-FRI-1000025398

PATIENT
  Sex: Female
  Weight: 103 kg

DRUGS (10)
  1. ZELDOX [Suspect]
     Active Substance: ZIPRASIDONE
     Indication: SCHIZOAFFECTIVE DISORDER
     Dosage: 80 MG, QD
     Route: 048
     Dates: end: 20111023
  2. CENTYL MED KALIUMKLORID [Concomitant]
     Active Substance: BENDROFLUMETHIAZIDE\POTASSIUM CHLORIDE
     Indication: SCHIZOAFFECTIVE DISORDER
     Dosage: 1 DF, QD
     Dates: end: 20111023
  3. MIRTAZAPINE. [Suspect]
     Active Substance: MIRTAZAPINE
     Indication: SCHIZOAFFECTIVE DISORDER
     Dosage: 30 MG, QD
     Route: 048
     Dates: start: 2011, end: 20111023
  4. ALPRAZOLAM. [Concomitant]
     Active Substance: ALPRAZOLAM
     Indication: PRODUCT USED FOR UNKNOWN INDICATION
     Dosage: 0.5 MG, QD
     Route: 065
     Dates: end: 20111022
  5. AMLODIPINE [Concomitant]
     Active Substance: AMLODIPINE BESYLATE
     Indication: PRODUCT USED FOR UNKNOWN INDICATION
     Route: 065
  6. LITAREX (LITHIUM CITRATE) [Suspect]
     Active Substance: LITHIUM CITRATE
     Indication: SCHIZOAFFECTIVE DISORDER
     Dosage: 1 DF (IN THE MORNING)
     Route: 048
     Dates: end: 20111023
  7. FRAGMIN [Concomitant]
     Active Substance: DALTEPARIN SODIUM
     Indication: PRODUCT USED FOR UNKNOWN INDICATION
  8. ESCITALOPRAM OXALATE - BP [Suspect]
     Active Substance: ESCITALOPRAM OXALATE
     Indication: SCHIZOAFFECTIVE DISORDER
     Dosage: DOSE OF 1 TABLET IN THE MORNING AND 1.5 TABLET IN THE EVENING
     Route: 048
     Dates: end: 20111023
  9. MIRTAZAPINE. [Suspect]
     Active Substance: MIRTAZAPINE
     Dosage: UNK
     Route: 065
  10. FERRO DURETTER [Concomitant]
     Active Substance: FERROUS SULFATE
     Indication: PRODUCT USED FOR UNKNOWN INDICATION
     Dosage: 100 MG, QD
     Route: 065
     Dates: end: 20111023

REACTIONS (20)
  - Neuroleptic malignant syndrome [Fatal]
  - Overdose [Unknown]
  - Lactic acidosis [Fatal]
  - Internal fixation of fracture [Fatal]
  - Dyspnoea [Not Recovered/Not Resolved]
  - Cardiac hypertrophy [Fatal]
  - Pyrexia [Fatal]
  - Confusional state [Fatal]
  - Hepatic cirrhosis [Fatal]
  - Hypertension [Not Recovered/Not Resolved]
  - Hyperventilation [Fatal]
  - Urinary tract infection [Unknown]
  - Constipation [Unknown]
  - Organ failure [Fatal]
  - Rhabdomyolysis [Fatal]
  - Fall [Recovered/Resolved]
  - Product use in unapproved indication [Unknown]
  - Lacunar infarction [Fatal]
  - Renal failure [Fatal]
  - Humerus fracture [Not Recovered/Not Resolved]

NARRATIVE: CASE EVENT DATE: 20111021
